FAERS Safety Report 13213204 (Version 1)
Quarter: 2017Q1

REPORT INFORMATION
  Report Type: Spontaneous
  Country: US (occurrence: US)
  Receive Date: 20170210
  Receipt Date: 20170210
  Transmission Date: 20170428
  Serious: Yes (Life-Threatening, Congenital Anomaly, Other)
  Sender: FDA-Public Use
  Company Number: US-APOTEX-2017AP006112

PATIENT
  Age: 0 Day

DRUGS (2)
  1. PAXIL [Suspect]
     Active Substance: PAROXETINE HYDROCHLORIDE
     Dosage: 12.5 MG, UNK
     Route: 064
  2. PAXIL [Suspect]
     Active Substance: PAROXETINE HYDROCHLORIDE
     Indication: PRODUCT USED FOR UNKNOWN INDICATION
     Dosage: UNK
     Route: 064

REACTIONS (12)
  - Lung disorder [Unknown]
  - Foetal exposure during pregnancy [Unknown]
  - Coarctation of the aorta [Unknown]
  - Atrial septal defect [Unknown]
  - Heart disease congenital [Unknown]
  - Patent ductus arteriosus [Unknown]
  - Persistent foetal circulation [Unknown]
  - Congenital anomaly [Unknown]
  - Pain [Unknown]
  - Cardiac murmur [Unknown]
  - Injury [Unknown]
  - Transposition of the great vessels [Unknown]

NARRATIVE: CASE EVENT DATE: 20050301
